FAERS Safety Report 9841895 (Version 1)
Quarter: 2014Q1

REPORT INFORMATION
  Report Type: Spontaneous
  Country: BR (occurrence: BR)
  Receive Date: 20140124
  Receipt Date: 20140124
  Transmission Date: 20141002
  Serious: Yes (Disabling, Other)
  Sender: FDA-Public Use
  Company Number: BR-JNJFOC-20140112061

PATIENT
  Age: 41 Year
  Sex: Female
  Weight: 82 kg

DRUGS (9)
  1. REMICADE [Suspect]
     Indication: ANKYLOSING SPONDYLITIS
     Route: 042
     Dates: start: 20121028
  2. REMICADE [Suspect]
     Indication: ANKYLOSING SPONDYLITIS
     Dosage: 16-JAN-2014 OR 17-JAN-2014
     Route: 042
     Dates: start: 201401
  3. METHOTREXATE [Concomitant]
     Indication: ILL-DEFINED DISORDER
     Route: 065
     Dates: start: 20121028
  4. METHOTREXATE [Concomitant]
     Indication: ANKYLOSING SPONDYLITIS
     Route: 065
     Dates: start: 20121028
  5. MELOXICAM [Concomitant]
     Indication: PAIN
     Route: 065
     Dates: start: 201210
  6. PREDNISONE [Concomitant]
     Indication: PAIN
     Route: 065
     Dates: start: 201210
  7. CYCLOBENZAPRINE [Concomitant]
     Indication: PAIN
     Route: 065
     Dates: start: 201210
  8. FOLIC ACID [Concomitant]
     Indication: PAIN
     Route: 065
     Dates: start: 201210
  9. RANITIDINE [Concomitant]
     Indication: PAIN
     Route: 065
     Dates: start: 201210

REACTIONS (2)
  - Abasia [Not Recovered/Not Resolved]
  - Inappropriate schedule of drug administration [Unknown]
